FAERS Safety Report 11761538 (Version 2)
Quarter: 2016Q2

REPORT INFORMATION
  Report Type: Spontaneous
  Country: US (occurrence: US)
  Receive Date: 20151120
  Receipt Date: 20160520
  Transmission Date: 20160815
  Serious: No
  Sender: FDA-Public Use
  Company Number: US-MDT-ADR-2015-02202

PATIENT
  Age: 6 Year
  Sex: Male

DRUGS (4)
  1. PREVACID [Suspect]
     Active Substance: LANSOPRAZOLE
  2. BACLOFEN. [Suspect]
     Active Substance: BACLOFEN
     Dosage: 132
     Route: 037
     Dates: start: 20150617
  3. BACLOFEN. [Suspect]
     Active Substance: BACLOFEN
     Dosage: 180 MG/DAY
     Route: 037
  4. DEPAKOTE [Suspect]
     Active Substance: DIVALPROEX SODIUM

REACTIONS (2)
  - Therapeutic response decreased [Unknown]
  - Muscle spasticity [Unknown]

NARRATIVE: CASE EVENT DATE: 20150901
